FAERS Safety Report 6668335-X (Version None)
Quarter: 2010Q2

REPORT INFORMATION
  Report Type: 
  Country: None (occurrence: None)
  Receive Date: 20100406
  Receipt Date: 20100324
  Transmission Date: 20101027
  Serious: Yes (Other)
  Sender: FDA-Public Use
  Company Number: DK-TYCO HEALTHCARE/MALLINCKRODT-T201000867

PATIENT
  Sex: Female
  Weight: 52 kg

DRUGS (6)
  1. TECHNESCAN [Suspect]
     Indication: RENAL SCAN
     Dosage: UNK, SINGLE
     Route: 042
     Dates: start: 20050823, end: 20050823
  2. ULTRA-TECHNEKOW FM [Suspect]
     Indication: RADIOISOTOPE SCAN
     Dosage: 70 MBQ, UNK
     Route: 042
     Dates: start: 20050823, end: 20050823
  3. OMNIPAQUE 140 [Suspect]
     Indication: SCAN WITH CONTRAST
     Dosage: UNK, SINGLE
     Route: 042
     Dates: start: 20050817, end: 20050817
  4. CONTRAST MEDIA [Suspect]
     Indication: COMPUTERISED TOMOGRAM
     Dosage: UNK
     Dates: start: 20050919, end: 20050919
  5. TRIQUILAR [Concomitant]
     Indication: CONTRACEPTION
     Dosage: 1 QD
     Route: 048
     Dates: end: 20050701
  6. NEXIUM [Concomitant]
     Indication: GASTRIC PH DECREASED
     Dosage: 20 MG
     Route: 048
     Dates: start: 20030301

REACTIONS (1)
  - THROMBOANGIITIS OBLITERANS [None]
